FAERS Safety Report 19302880 (Version 1)
Quarter: 2021Q2

REPORT INFORMATION
  Report Type: Spontaneous
  Country: US (occurrence: US)
  Receive Date: 20210525
  Receipt Date: 20210525
  Transmission Date: 20210717
  Serious: No
  Sender: FDA-Public Use
  Company Number: US-SA-2021SA051691

PATIENT
  Age: 72 Year
  Sex: Female

DRUGS (19)
  1. SPIRIVA [Concomitant]
     Active Substance: TIOTROPIUM BROMIDE MONOHYDRATE
     Dosage: 180MG
  2. SYNTHROID [Concomitant]
     Active Substance: LEVOTHYROXINE SODIUM
  3. LIPITOR [Concomitant]
     Active Substance: ATORVASTATIN CALCIUM
     Dosage: 20 MG
  4. VITAMIN B?6 [Concomitant]
     Active Substance: PYRIDOXINE
     Dosage: 100 MG
  5. VITAMIN B12 AMINO [Concomitant]
     Active Substance: CYANOCOBALAMIN
  6. VERAPAMIL [Concomitant]
     Active Substance: VERAPAMIL HYDROCHLORIDE
     Dosage: UNK MG
  7. VENTOLIN HFA [Concomitant]
     Active Substance: ALBUTEROL SULFATE
     Indication: ASTHMA
     Dosage: 120MG
  8. VITAMIN B?6 [Concomitant]
     Active Substance: PYRIDOXINE
  9. ALLEGRA ALLERGY [Concomitant]
     Active Substance: FEXOFENADINE HYDROCHLORIDE
     Dosage: 180MG
  10. RECLAST [Concomitant]
     Active Substance: ZOLEDRONIC ACID
  11. DUPIXENT [Suspect]
     Active Substance: DUPILUMAB
     Indication: ASTHMA
     Dosage: 600 MG, 1X
     Route: 058
     Dates: start: 20201216, end: 20201216
  12. VITAMIN B2 [Concomitant]
     Active Substance: RIBOFLAVIN
  13. ESTRADIOL. [Concomitant]
     Active Substance: ESTRADIOL
     Dosage: 5 MG
  14. VITAMIN B?6 [Concomitant]
     Active Substance: PYRIDOXINE
     Dosage: 100 MG
  15. ADVAIR HFA [Concomitant]
     Active Substance: FLUTICASONE PROPIONATE\SALMETEROL XINAFOATE
  16. DUPIXENT [Suspect]
     Active Substance: DUPILUMAB
     Dosage: 300 MG, QOW
     Route: 058
  17. IMITREX DF [Concomitant]
     Active Substance: SUMATRIPTAN SUCCINATE
  18. PEPCID [Concomitant]
     Active Substance: FAMOTIDINE
     Dosage: 10 MG
  19. OLOPATADINE HYDROCHLORIDE. [Concomitant]
     Active Substance: OLOPATADINE HYDROCHLORIDE
     Dosage: 5 MG

REACTIONS (5)
  - Paraesthesia [Unknown]
  - Product use issue [Unknown]
  - Dry eye [Unknown]
  - Arthralgia [Unknown]
  - Drug ineffective [Unknown]

NARRATIVE: CASE EVENT DATE: 20201216
